FAERS Safety Report 7808631-3 (Version None)
Quarter: 2011Q4

REPORT INFORMATION
  Report Type: 
  Country: None (occurrence: None)
  Receive Date: 20111006
  Receipt Date: 20110928
  Transmission Date: 20120403
  Serious: Yes (Hospitalization)
  Sender: FDA-Public Use
  Company Number: KR-005159

PATIENT
  Sex: Male
  Weight: 64 kg

DRUGS (3)
  1. DEGARELIX (DEGARELIX) (240 MG, 80 MG) [Suspect]
     Indication: PROSTATE CANCER
     Dosage: 240 MG 1X /MONTH, SUBCUTANEOUS
     Route: 058
     Dates: start: 20110422
  2. DEGARELIX (DEGARELIX) (240 MG, 80 MG) [Suspect]
     Indication: PROSTATE CANCER
     Dosage: 240 MG 1X /MONTH, SUBCUTANEOUS
     Route: 058
     Dates: start: 20110314, end: 20110314
  3. TAMSULOSIN HCL [Concomitant]

REACTIONS (12)
  - METASTASES TO LUNG [None]
  - PERINEAL PAIN [None]
  - CONDITION AGGRAVATED [None]
  - PELVIC PAIN [None]
  - METASTASES TO BONE [None]
  - PNEUMONIA [None]
  - PENILE PAIN [None]
  - HYPOXIA [None]
  - URINARY RETENTION [None]
  - DYSURIA [None]
  - HAEMATURIA [None]
  - METASTASES TO PLEURA [None]
